FAERS Safety Report 4761315-0 (Version None)
Quarter: 2005Q3

REPORT INFORMATION
  Report Type: 
  Country: None (occurrence: None)
  Receive Date: 20050830
  Receipt Date: 20050527
  Transmission Date: 20060218
  Serious: No
  Sender: FDA-Public Use
  Company Number: FABR-11124

PATIENT
  Age: 56 Year
  Sex: Female
  Weight: 71.2147 kg

DRUGS (5)
  1. FABRAZYME [Suspect]
     Indication: FABRY'S DISEASE
     Dosage: 70 MG Q2WKS IV
     Route: 042
     Dates: start: 20050214
  2. TYLENOL [Concomitant]
  3. CLARITIN [Concomitant]
  4. MECLIZINE [Concomitant]
  5. INHALER (NOS) [Concomitant]

REACTIONS (2)
  - DYSPNOEA EXACERBATED [None]
  - RASH [None]
